FAERS Safety Report 14114058 (Version 1)
Quarter: 2017Q4

REPORT INFORMATION
  Report Type: Report from Study
  Country: DE (occurrence: DE)
  Receive Date: 20171023
  Receipt Date: 20171023
  Transmission Date: 20180321
  Serious: Yes (Hospitalization, Disabling, Other)
  Sender: FDA-Public Use
  Company Number: DE-TAKEDA-2016TUS011177

PATIENT
  Age: 54 Year
  Sex: Male
  Weight: 70 kg

DRUGS (10)
  1. PENTASA XTREND [Concomitant]
     Indication: COLITIS ULCERATIVE
     Dosage: 4 MG, QD
     Dates: start: 20140522, end: 201602
  2. PREDNISOLONE. [Concomitant]
     Active Substance: PREDNISOLONE
     Dosage: 1 MG, QD
     Dates: start: 20160303
  3. RAMIPRIL. [Concomitant]
     Active Substance: RAMIPRIL
     Indication: HYPERTENSION
     Dosage: 2.5 MG, QD
     Dates: start: 2015
  4. PREDNISOLONE. [Concomitant]
     Active Substance: PREDNISOLONE
     Indication: COLITIS ULCERATIVE
     Dosage: UNK
     Dates: start: 20141120, end: 201602
  5. DEKRISTOL [Concomitant]
     Active Substance: CHOLECALCIFEROL
     Indication: VITAMIN D DEFICIENCY
     Dosage: 20000 IU, 1/WEEK
  6. VEDOLIZUMAB [Suspect]
     Active Substance: VEDOLIZUMAB
     Indication: COLITIS ULCERATIVE
     Dosage: 300 MG, UNK
     Route: 042
     Dates: start: 20151112, end: 20160201
  7. MESALAZINE [Concomitant]
     Active Substance: MESALAMINE
     Indication: COLITIS ULCERATIVE
     Dosage: 1 G, QD
     Route: 054
     Dates: start: 20151113, end: 201602
  8. ARIXTRA [Concomitant]
     Active Substance: FONDAPARINUX SODIUM
     Indication: VENOUS THROMBOSIS
     Dosage: 2.5 ML, QD
     Dates: start: 2015
  9. MUCOFALK                           /01328803/ [Concomitant]
     Indication: POUCHITIS
     Dosage: UNK
     Dates: start: 201602
  10. PREDNISONE. [Concomitant]
     Active Substance: PREDNISONE
     Indication: COLITIS ULCERATIVE
     Dosage: 10 MG, QD
     Dates: start: 20150303

REACTIONS (4)
  - Colitis ulcerative [Recovered/Resolved]
  - Pouchitis [Unknown]
  - Drug ineffective [Unknown]
  - Ileus [Not Recovered/Not Resolved]

NARRATIVE: CASE EVENT DATE: 20160114
